FAERS Safety Report 4740921-3 (Version None)
Quarter: 2005Q3

REPORT INFORMATION
  Report Type: 
  Country: None (occurrence: None)
  Receive Date: 20050808
  Receipt Date: 20050729
  Transmission Date: 20060218
  Serious: Yes (Other)
  Sender: FDA-Public Use
  Company Number: 05-NIP00071

PATIENT
  Sex: Male

DRUGS (3)
  1. NIPENT [Suspect]
     Indication: HODGKIN'S DISEASE
  2. ARA-C (ARA-C/AMPHOTERICIN) [Suspect]
  3. MITOXANTRONE [Suspect]

REACTIONS (4)
  - CARDIOMYOPATHY [None]
  - DILATATION VENTRICULAR [None]
  - EJECTION FRACTION DECREASED [None]
  - SINUS TACHYCARDIA [None]
